FAERS Safety Report 5738738-6 (Version None)
Quarter: 2008Q2

REPORT INFORMATION
  Report Type: 
  Country: None (occurrence: None)
  Receive Date: 20080515
  Receipt Date: 20080509
  Transmission Date: 20081010
  Serious: Yes (Disabling)
  Sender: FDA-Public Use
  Company Number: US-WYE-H03788608

PATIENT
  Sex: Male
  Weight: 63.56 kg

DRUGS (2)
  1. TORISEL [Suspect]
     Indication: RENAL CELL CARCINOMA
     Route: 042
     Dates: start: 20080211, end: 20080422
  2. TORISEL [Suspect]
     Route: 042
     Dates: start: 20080430

REACTIONS (3)
  - RASH [None]
  - RASH ERYTHEMATOUS [None]
  - RASH PRURITIC [None]
